FAERS Safety Report 8297691-4 (Version None)
Quarter: 2012Q2

REPORT INFORMATION
  Report Type: 
  Country: None (occurrence: None)
  Receive Date: 20120417
  Receipt Date: 20120410
  Transmission Date: 20120825
  Serious: Yes (Hospitalization, Other)
  Sender: FDA-Public Use
  Company Number: 2012SP011437

PATIENT
  Age: 7 Year
  Sex: Male

DRUGS (2)
  1. PEGINTERFERON ALFA-2B [Suspect]
     Indication: HEPATITIS C
     Dosage: 50 MCG; ONCE; SC
     Route: 058
     Dates: start: 20120229
  2. REBETOL [Suspect]
     Indication: HEPATITIS C

REACTIONS (2)
  - NEEDLE ISSUE [None]
  - FOREIGN BODY [None]
